FAERS Safety Report 16298187 (Version 1)
Quarter: 2019Q2

REPORT INFORMATION
  Report Type: Report from Study
  Country: IT (occurrence: IT)
  Receive Date: 20190510
  Receipt Date: 20190510
  Transmission Date: 20190711
  Serious: Yes (Other)
  Sender: FDA-Public Use
  Company Number: IT-TEVA-2019-IT-1047745

PATIENT
  Age: 85 Year
  Sex: Female

DRUGS (7)
  1. DIBASE 10.000 U.I./ML GOCCE ORALI, SOLUZIONE [Concomitant]
     Active Substance: CHOLECALCIFEROL
  2. BREVA 0,375% + MG 0,075% SOLUZIONE DA NEBULIZZARE O SOLUZIONE ORALE [Concomitant]
  3. CLENIL 800 MICROGRAMMI SOSPENSIONE PER NEBULIZZATORE [Concomitant]
  4. DIAMOX 250 MG COMPRESSE [Concomitant]
     Active Substance: ACETAZOLAMIDE
  5. TICLOPIDINE HYDROCHLORIDE. [Suspect]
     Active Substance: TICLOPIDINE HYDROCHLORIDE
     Route: 048
  6. MEMAC. [Concomitant]
  7. CODAMOL 500 MG + 30 MG COMPRESSE EFFERVESCENTI [Concomitant]

REACTIONS (3)
  - Respiratory failure [Recovering/Resolving]
  - Melaena [Recovering/Resolving]
  - Anaemia [Recovering/Resolving]

NARRATIVE: CASE EVENT DATE: 20170218
